FAERS Safety Report 16868183 (Version 1)
Quarter: 2019Q4

REPORT INFORMATION
  Report Type: Spontaneous
  Country: US (occurrence: US)
  Receive Date: 20190930
  Receipt Date: 20190930
  Transmission Date: 20200122
  Serious: No
  Sender: FDA-Public Use
  Company Number: None

PATIENT
  Age: 95 Year
  Sex: Female
  Weight: 50.35 kg

DRUGS (1)
  1. CAPECITABINE. [Suspect]
     Active Substance: CAPECITABINE
     Indication: BREAST CANCER
     Dosage: ?          OTHER FREQUENCY:3T AM 2T PM 7D;?
     Route: 048
     Dates: start: 20180504, end: 20190930

REACTIONS (1)
  - Hospice care [None]

NARRATIVE: CASE EVENT DATE: 20190930
